FAERS Safety Report 8347250-X (Version None)
Quarter: 2012Q2

REPORT INFORMATION
  Report Type: 
  Country: None (occurrence: None)
  Receive Date: 20120509
  Receipt Date: 20120501
  Transmission Date: 20120825
  Serious: Yes (Hospitalization)
  Sender: FDA-Public Use
  Company Number: NL-MEDIMMUNE-MEDI-0013923

PATIENT
  Sex: Male
  Weight: 7.34 kg

DRUGS (1)
  1. SYNAGIS [Suspect]
     Route: 030
     Dates: start: 20111011, end: 20111011

REACTIONS (7)
  - DYSPNOEA [None]
  - RESPIRATORY FAILURE [None]
  - GASTROENTERITIS [None]
  - RENAL DISORDER [None]
  - PYREXIA [None]
  - LIVER DISORDER [None]
  - DEHYDRATION [None]
